FAERS Safety Report 7232126-1 (Version None)
Quarter: 2011Q1

REPORT INFORMATION
  Report Type: 
  Country: None (occurrence: None)
  Receive Date: 20110119
  Receipt Date: 20110107
  Transmission Date: 20110831
  Serious: Yes (Hospitalization)
  Sender: FDA-Public Use
  Company Number: US-BIOGENIDEC-2010BI045161

PATIENT
  Age: 39 Year
  Sex: Female

DRUGS (8)
  1. TYSABRI [Suspect]
     Indication: MULTIPLE SCLEROSIS
     Route: 042
     Dates: start: 20090713
  2. LISINOPRIL [Concomitant]
  3. LANTUS [Concomitant]
     Indication: TYPE 1 DIABETES MELLITUS
     Route: 058
  4. CALCIUM WITH VITAMIN D [Concomitant]
     Indication: OSTEOPENIA
  5. NOVOLOG [Concomitant]
     Indication: TYPE 1 DIABETES MELLITUS
     Route: 058
  6. MACROBID [Concomitant]
     Indication: PROPHYLAXIS URINARY TRACT INFECTION
  7. AMPYRA [Concomitant]
  8. ORAL CONTRACEPTIVE [Concomitant]

REACTIONS (4)
  - CONSTIPATION [None]
  - URINARY TRACT INFECTION [None]
  - COMMINUTED FRACTURE [None]
  - ANAEMIA [None]
